FAERS Safety Report 16648857 (Version 1)
Quarter: 2019Q3

REPORT INFORMATION
  Report Type: Spontaneous
  Country: DE (occurrence: DE)
  Receive Date: 20190730
  Receipt Date: 20190730
  Transmission Date: 20191004
  Serious: Yes (Life-Threatening, Hospitalization)
  Sender: FDA-Public Use
  Company Number: DE-MYLANLABS-2019M1071736

PATIENT
  Age: 58 Year
  Sex: Female
  Weight: 131 kg

DRUGS (10)
  1. IBUPROFEN. [Concomitant]
     Active Substance: IBUPROFEN
     Dosage: UNK
  2. LORAZEPAM. [Concomitant]
     Active Substance: LORAZEPAM
     Dosage: UNK
  3. BISOPROLOL [Concomitant]
     Active Substance: BISOPROLOL
     Indication: HYPERTENSION
     Dosage: 2.5 MILLIGRAM, QD (DAILY DOSE: 2.5 MG MILLGRAM(S) EVERY DAYS)
     Route: 048
     Dates: start: 20180619
  4. ATORVASTATIN [Concomitant]
     Active Substance: ATORVASTATIN
     Indication: HYPERCHOLESTEROLAEMIA
     Dosage: 40 MILLIGRAM, QD (DAILY DOSE: 40 MG MILLGRAM(S) EVERY DAYS)
     Route: 048
     Dates: start: 20160715
  5. TIANEPTINE [Concomitant]
     Active Substance: TIANEPTINE
     Indication: DEPRESSION
     Dosage: 12.5 MILLIGRAM, QD (DAILY DOSE: 12.5 MG MILLGRAM(S) EVERY DAYS)
     Route: 048
     Dates: start: 20190116, end: 20190207
  6. LOPERAMIDE [Concomitant]
     Active Substance: LOPERAMIDE
     Dosage: UNK
  7. PARACETAMOL [Concomitant]
     Active Substance: ACETAMINOPHEN
     Dosage: UNK
  8. PIPAMPERON [Concomitant]
     Active Substance: PIPAMPERONE HYDROCHLORIDE
     Dosage: 20 MILLIGRAM
     Dates: end: 20190207
  9. ARIPIPRAZOLE. [Suspect]
     Active Substance: ARIPIPRAZOLE
     Indication: PRODUCT USED FOR UNKNOWN INDICATION
     Dosage: 10 MILLIGRAM, QD (DAILY DOSE: 10 MG MILLGRAM(S) EVERY DAYS)
     Route: 048
  10. APIXABAN [Concomitant]
     Active Substance: APIXABAN
     Indication: ATRIAL FIBRILLATION
     Dosage: 10 MILLIGRAM, QD (DAILY DOSE: 10 MG MILLGRAM(S) EVERY DAYS)
     Route: 048
     Dates: start: 20180619

REACTIONS (3)
  - Hypothermia [Recovering/Resolving]
  - Depressed mood [Recovering/Resolving]
  - Apathy [Recovering/Resolving]

NARRATIVE: CASE EVENT DATE: 20181219
